FAERS Safety Report 6186568-6 (Version None)
Quarter: 2009Q2

REPORT INFORMATION
  Report Type: 
  Country: None (occurrence: None)
  Receive Date: 20090512
  Receipt Date: 20090508
  Transmission Date: 20091009
  Serious: Yes (Other)
  Sender: FDA-Public Use
  Company Number: PE-BRISTOL-MYERS SQUIBB COMPANY-14552376

PATIENT
  Age: 56 Year
  Sex: Female

DRUGS (1)
  1. IXEMPRA KIT [Suspect]
     Indication: DRUG RESISTANCE
     Dosage: DOSE REDUCED TO 80% AND NOT INTERRUPTED NO OF CYCLE: 4
     Route: 042
     Dates: start: 20081230

REACTIONS (3)
  - COLLAPSE OF LUNG [None]
  - NEUROPATHY PERIPHERAL [None]
  - PLEURAL EFFUSION [None]
